FAERS Safety Report 18696791 (Version 2)
Quarter: 2021Q1

REPORT INFORMATION
  Report Type: Report from Study
  Country: US (occurrence: US)
  Receive Date: 20210104
  Receipt Date: 20210111
  Transmission Date: 20210419
  Serious: Yes (Other)
  Sender: FDA-Public Use
  Company Number: US-JAZZ-2019-US-005616

PATIENT
  Age: 17 Year
  Sex: Female

DRUGS (8)
  1. XYREM [Suspect]
     Active Substance: SODIUM OXYBATE
     Indication: NARCOLEPSY
     Dosage: 1.5 G, BID
     Route: 048
     Dates: start: 201904
  2. ADDERALL [Concomitant]
     Active Substance: AMPHETAMINE ASPARTATE\AMPHETAMINE SULFATE\DEXTROAMPHETAMINE SACCHARATE\DEXTROAMPHETAMINE SULFATE
  3. MUPIROCIN. [Concomitant]
     Active Substance: MUPIROCIN
  4. ALEVE [Concomitant]
     Active Substance: NAPROXEN SODIUM
  5. FISH OIL [Concomitant]
     Active Substance: FISH OIL
  6. XYREM [Suspect]
     Active Substance: SODIUM OXYBATE
     Indication: CATAPLEXY
  7. MODAFINIL. [Concomitant]
     Active Substance: MODAFINIL
  8. LATUDA [Concomitant]
     Active Substance: LURASIDONE HYDROCHLORIDE

REACTIONS (5)
  - Bipolar disorder [Recovering/Resolving]
  - Dental discomfort [Unknown]
  - Anxiety [Not Recovered/Not Resolved]
  - Paraesthesia [Unknown]
  - Enuresis [Unknown]

NARRATIVE: CASE EVENT DATE: 201904
